FAERS Safety Report 14123750 (Version 1)
Quarter: 2017Q4

REPORT INFORMATION
  Report Type: Spontaneous
  Country: US (occurrence: US)
  Receive Date: 20171025
  Receipt Date: 20171025
  Transmission Date: 20180321
  Serious: Yes (Hospitalization, Other)
  Sender: FDA-Public Use
  Company Number: PHHY2017US155765

PATIENT
  Sex: Female
  Weight: .82 kg

DRUGS (3)
  1. CYCLOPHOSPHAMIDE. [Suspect]
     Active Substance: CYCLOPHOSPHAMIDE
     Indication: FOETAL EXPOSURE DURING PREGNANCY
     Dosage: METRANAL DOSE: 5 COURSES SPACED IN 3-WEEK INTERVALS
     Route: 064
  2. RITUXIMAB. [Suspect]
     Active Substance: RITUXIMAB
     Indication: FOETAL EXPOSURE DURING PREGNANCY
     Dosage: METERANAL DOSE: 5 COURSES SPACED IN 3-WEEK INTERVALS
     Route: 064
  3. PREDNISONE. [Suspect]
     Active Substance: PREDNISONE
     Indication: FOETAL EXPOSURE DURING PREGNANCY
     Dosage: METERNAL DOSE: 5 COURSES SPACED IN 3-WEEK INTERVALS
     Route: 064

REACTIONS (18)
  - Gait disturbance [Recovered/Resolved]
  - Bacteraemia [Recovered/Resolved]
  - Lethargy [Recovered/Resolved]
  - Humoral immune defect [Recovered/Resolved]
  - Temperature regulation disorder [Recovered/Resolved]
  - Bradycardia [Recovered/Resolved]
  - Enterococcal infection [Recovered/Resolved]
  - Foetal growth restriction [Unknown]
  - Respiration abnormal [Recovered/Resolved]
  - Respiratory distress [Recovered/Resolved]
  - Hypoxia [Recovered/Resolved]
  - Meningitis [Recovered/Resolved]
  - Low birth weight baby [Unknown]
  - Foetal exposure during pregnancy [Unknown]
  - Sepsis [Recovered/Resolved]
  - Asthenia [Recovered/Resolved]
  - Infantile apnoea [Recovered/Resolved]
  - Premature baby [Unknown]
